FAERS Safety Report 21166103 (Version 2)
Quarter: 2022Q3

REPORT INFORMATION
  Report Type: Report from Study
  Country: DE (occurrence: DE)
  Receive Date: 20220803
  Receipt Date: 20220908
  Transmission Date: 20221027
  Serious: Yes (Hospitalization, Other)
  Sender: FDA-Public Use
  Company Number: DE-MYLANLABS-2022M1051588

PATIENT
  Sex: Female

DRUGS (3)
  1. CELECOXIB [Suspect]
     Active Substance: CELECOXIB
     Indication: Axial spondyloarthritis
     Dosage: 200 MG
     Dates: start: 20200729
  2. METHOTREXATE SODIUM [Suspect]
     Active Substance: METHOTREXATE SODIUM
     Indication: Axial spondyloarthritis
     Dosage: 15 MG
     Route: 058
     Dates: start: 20200731
  3. UNSPECIFIED INGREDIENT [Suspect]
     Active Substance: UNSPECIFIED INGREDIENT
     Dosage: NO DOSE GIVEN

REACTIONS (6)
  - COVID-19 pneumonia [Unknown]
  - Pulmonary sepsis [Unknown]
  - Urosepsis [Unknown]
  - Nosocomial infection [Unknown]
  - Acute kidney injury [Unknown]
  - Candida sepsis [Unknown]

NARRATIVE: CASE EVENT DATE: 20210207
